FAERS Safety Report 21276296 (Version 1)
Quarter: 2022Q3

REPORT INFORMATION
  Report Type: Spontaneous
  Country: US (occurrence: US)
  Receive Date: 20220831
  Receipt Date: 20220831
  Transmission Date: 20221026
  Serious: Yes (Other)
  Sender: FDA-Public Use
  Company Number: US-ABBVIE-22K-163-4426904-00

PATIENT
  Age: 48 Year
  Sex: Female

DRUGS (1)
  1. HUMIRA [Suspect]
     Active Substance: ADALIMUMAB
     Indication: Product used for unknown indication
     Route: 058

REACTIONS (11)
  - Abdominal operation [Unknown]
  - Stoma closure [Unknown]
  - Fistula [Unknown]
  - Crohn^s disease [Unknown]
  - Hypothyroidism [Unknown]
  - Meniere^s disease [Unknown]
  - Major depression [Unknown]
  - Panic disorder [Unknown]
  - Skin weeping [Unknown]
  - Anxiety [Unknown]
  - Psoriasis [Unknown]
